FAERS Safety Report 19009253 (Version 1)
Quarter: 2021Q1

REPORT INFORMATION
  Report Type: Spontaneous
  Country: US (occurrence: US)
  Receive Date: 20210315
  Receipt Date: 20210315
  Transmission Date: 20210420
  Serious: No
  Sender: FDA-Public Use
  Company Number: US-FRESENIUS KABI-FK202102422

PATIENT
  Sex: Female

DRUGS (1)
  1. CONSTULOSE [Suspect]
     Active Substance: LACTULOSE
     Indication: CONSTIPATION
     Dosage: CONSTULOSE 10 G/15 ML ?PRODUCT CODE: 439
     Route: 065
     Dates: start: 20210304

REACTIONS (2)
  - Diarrhoea [Unknown]
  - Therapeutic product effect increased [Unknown]
